FAERS Safety Report 14039581 (Version 1)
Quarter: 2017Q4

REPORT INFORMATION
  Report Type: Spontaneous
  Country: CN (occurrence: CN)
  Receive Date: 20171004
  Receipt Date: 20171004
  Transmission Date: 20180321
  Serious: Yes (Hospitalization, Other)
  Sender: FDA-Public Use
  Company Number: CN-GLAXOSMITHKLINE-CN2017GSK151885

PATIENT
  Age: 63 Year
  Sex: Male

DRUGS (1)
  1. LAMICTAL [Suspect]
     Active Substance: LAMOTRIGINE
     Indication: EPILEPSY
     Dosage: UNK
     Route: 048

REACTIONS (6)
  - Glioma [Recovering/Resolving]
  - Rash [Recovered/Resolved]
  - Dysphagia [Unknown]
  - Wrong technique in product usage process [Unknown]
  - Disease progression [Recovering/Resolving]
  - Lung infection [Not Recovered/Not Resolved]
